FAERS Safety Report 5386096-1 (Version None)
Quarter: 2007Q3

REPORT INFORMATION
  Report Type: 
  Country: None (occurrence: None)
  Receive Date: 20070710
  Receipt Date: 20070629
  Transmission Date: 20080115
  Serious: Yes (Other)
  Sender: FDA-Public Use
  Company Number: CHNY2007CA02407

PATIENT
  Age: 50 Year
  Sex: Female

DRUGS (4)
  1. HABITROL [Suspect]
     Indication: SMOKING CESSATION THERAPY
     Dosage: 21 MG, QD, TRASDERMAL
     Route: 062
     Dates: start: 20070626
  2. NICORETTE [Concomitant]
  3. COUMADIN [Concomitant]
  4. ALL OTHER THERAPEUTIC PRODUCTS (NO INGREDIENTS/SUBSTANCES) [Concomitant]

REACTIONS (1)
  - BLOOD CARBON MONOXIDE INCREASED [None]
